FAERS Safety Report 8071996-4 (Version None)
Quarter: 2012Q1

REPORT INFORMATION
  Report Type: 
  Country: None (occurrence: None)
  Receive Date: 20120124
  Receipt Date: 20120124
  Transmission Date: 20120608
  Serious: No
  Sender: FDA-Public Use
  Company Number: None

PATIENT
  Age: 18 Year
  Sex: Female

DRUGS (2)
  1. NORETHINDRONE ACETATE AND ETHINYL ESTRADIOL [Suspect]
     Indication: VON WILLEBRAND'S DISEASE
     Dosage: 1MG TID; 1MG 5X/DAY
  2. NORETHINDRONE ACETATE AND ETHINYL ESTRADIOL [Suspect]
     Indication: VAGINAL HAEMORRHAGE
     Dosage: 1MG TID; 1MG 5X/DAY

REACTIONS (2)
  - PRODUCT SUBSTITUTION ISSUE [None]
  - HAEMORRHAGE [None]
